FAERS Safety Report 17507096 (Version 8)
Quarter: 2025Q2

REPORT INFORMATION
  Report Type: Report from Study
  Country: DE (occurrence: DE)
  Receive Date: 20200306
  Receipt Date: 20250602
  Transmission Date: 20250717
  Serious: Yes (Other)
  Sender: RANBAXY
  Company Number: DE-SUN PHARMACEUTICAL INDUSTRIES LTD-2020RR-238555

PATIENT
  Age: 79 Year
  Sex: Female
  Weight: 56 kg

DRUGS (12)
  1. ODOMZO [Suspect]
     Active Substance: SONIDEGIB
     Indication: Basal cell carcinoma
     Dosage: 200 MILLIGRAM, DAILY
     Route: 048
     Dates: start: 20190927, end: 20200127
  2. .BETA.-ACETYLDIGOXIN [Concomitant]
     Active Substance: .BETA.-ACETYLDIGOXIN
     Indication: Pre-existing disease
     Dosage: 0.1 MILLIGRAM, DAILY
     Route: 048
     Dates: start: 20150804
  3. LEVOTHYROXINE [Concomitant]
     Active Substance: LEVOTHYROXINE
     Indication: Pre-existing disease
     Dosage: 100 MILLIGRAM, DAILY
     Route: 048
     Dates: start: 20150417
  4. RAMIPRIL [Concomitant]
     Active Substance: RAMIPRIL
     Indication: Pre-existing disease
     Dosage: 10 MILLIGRAM, DAILY
     Route: 048
     Dates: start: 20171214
  5. LOVASTATIN [Concomitant]
     Active Substance: LOVASTATIN
     Indication: Pre-existing disease
     Dosage: 20 MILLIGRAM, DAILY
     Route: 048
     Dates: start: 20150610
  6. TORSEMIDE [Concomitant]
     Active Substance: TORSEMIDE
     Indication: Pre-existing disease
     Dosage: 30 MILLIGRAM, DAILY
     Route: 048
     Dates: start: 20181008
  7. METOPROLOL [Concomitant]
     Active Substance: METOPROLOL
     Indication: Pre-existing disease
     Dosage: 95 MILLIGRAM, DAILY
     Route: 048
     Dates: start: 20181008
  8. MARCUMAR [Concomitant]
     Active Substance: PHENPROCOUMON
     Indication: Pre-existing disease
     Dosage: 1.25 MILLIGRAM, DAILY
     Route: 048
     Dates: start: 20151002
  9. METHOTREXATE [Concomitant]
     Active Substance: METHOTREXATE
     Indication: Pre-existing disease
     Dosage: 10 MILLIGRAM, WEEKLY
     Route: 048
     Dates: start: 20180727
  10. PREDNISOLONE [Concomitant]
     Active Substance: PREDNISOLONE
     Indication: Pre-existing disease
     Dosage: 5 MILLIGRAM, DAILY
     Route: 048
     Dates: start: 20180711
  11. ALENDRONIC ACID [Concomitant]
     Active Substance: ALENDRONIC ACID
     Indication: Pre-existing disease
     Dosage: 70 MILLIGRAM, WEEKLY
     Route: 048
     Dates: start: 20190412
  12. Cemiplimap [Concomitant]
     Indication: Pre-existing disease
     Route: 040
     Dates: start: 20200129, end: 20200512

REACTIONS (1)
  - Disease progression [Not Recovered/Not Resolved]

NARRATIVE: CASE EVENT DATE: 20200127
